FAERS Safety Report 7430366-X (Version None)
Quarter: 2011Q2

REPORT INFORMATION
  Report Type: 
  Country: None (occurrence: None)
  Receive Date: 20110421
  Receipt Date: 20100601
  Transmission Date: 20111010
  Serious: No
  Sender: FDA-Public Use
  Company Number: US-ASTRAZENECA-2010SE25210

PATIENT
  Sex: Female

DRUGS (6)
  1. PERCOCET [Concomitant]
  2. AMBIEN [Concomitant]
  3. COUMADIN [Concomitant]
  4. TAMODEX [Concomitant]
  5. TOPROL-XL [Suspect]
     Route: 048
     Dates: start: 20100501
  6. IMDUR [Concomitant]

REACTIONS (1)
  - SKIN ODOUR ABNORMAL [None]
